FAERS Safety Report 17845637 (Version 2)
Quarter: 2021Q2

REPORT INFORMATION
  Report Type: Spontaneous
  Country: CA (occurrence: CA)
  Receive Date: 20200601
  Receipt Date: 20210624
  Transmission Date: 20210717
  Serious: Yes (Other)
  Sender: FDA-Public Use
  Company Number: CA-ROCHE-2609145

PATIENT
  Age: 64 Year
  Sex: Female

DRUGS (16)
  1. PROCYTOX [Suspect]
     Active Substance: CYCLOPHOSPHAMIDE
     Indication: B-CELL LYMPHOMA
     Route: 042
  2. PROMETRIUM [Concomitant]
     Active Substance: PROGESTERONE
     Route: 065
  3. RITUXIMAB. [Suspect]
     Active Substance: RITUXIMAB
     Indication: B-CELL LYMPHOMA
     Route: 042
  4. ASPIRIN. [Concomitant]
     Active Substance: ASPIRIN
     Route: 065
  5. PREDNISONE. [Suspect]
     Active Substance: PREDNISONE
     Route: 065
  6. ATENOLOL. [Concomitant]
     Active Substance: ATENOLOL
     Route: 065
  7. APO?PREDNISONE [Suspect]
     Active Substance: PREDNISONE
     Indication: B-CELL LYMPHOMA
     Route: 065
  8. CYANOCOBALAMIN. [Concomitant]
     Active Substance: CYANOCOBALAMIN
     Route: 065
  9. D?ALPHA TOCOPHEROL [Concomitant]
     Active Substance: .ALPHA.-TOCOPHEROL, D-
     Route: 065
  10. PROGESTERONE. [Concomitant]
     Active Substance: PROGESTERONE
     Route: 065
  11. IBRUTINIB [Suspect]
     Active Substance: IBRUTINIB
     Indication: B-CELL LYMPHOMA
     Route: 065
  12. VINCRISTINE SULFATE. [Suspect]
     Active Substance: VINCRISTINE SULFATE
     Indication: B-CELL LYMPHOMA
     Route: 065
  13. LOSEC [Concomitant]
     Active Substance: OMEPRAZOLE
     Route: 065
  14. VITAMIN B12 [Concomitant]
     Active Substance: CYANOCOBALAMIN
     Route: 065
  15. PREDNISONE. [Suspect]
     Active Substance: PREDNISONE
     Indication: B-CELL LYMPHOMA
     Route: 065
  16. OMEPRAZOLE SODIUM [Concomitant]
     Active Substance: OMEPRAZOLE SODIUM
     Route: 065

REACTIONS (3)
  - Cataract [Unknown]
  - Hypothyroidism [Unknown]
  - Neoplasm progression [Unknown]
